FAERS Safety Report 6773291-X (Version None)
Quarter: 2010Q2

REPORT INFORMATION
  Report Type: 
  Country: None (occurrence: None)
  Receive Date: 20100611
  Receipt Date: 20100601
  Transmission Date: 20101027
  Serious: Yes (Other)
  Sender: FDA-Public Use
  Company Number: B0659464A

PATIENT

DRUGS (2)
  1. TOPOTECAN HYDROCHLORIDE [Suspect]
     Indication: OVARIAN CANCER
     Dosage: CYCLIC/ INTRAVENOUS
     Route: 042
  2. SORAFENIB (SORAFENIB) (FORMULATION UNKNOWN) [Suspect]
     Indication: OVARIAN CANCER
     Dosage: ORAL
     Route: 048

REACTIONS (1)
  - PALMAR-PLANTAR ERYTHRODYSAESTHESIA SYNDROME [None]
